FAERS Safety Report 12613405 (Version 1)
Quarter: 2016Q3

REPORT INFORMATION
  Report Type: Spontaneous
  Country: US (occurrence: None)
  Receive Date: 20160801
  Receipt Date: 20160801
  Transmission Date: 20161109
  Serious: Yes (Disabling)
  Sender: FDA-Public Use
  Company Number: None

PATIENT
  Age: 35 Year
  Sex: Female
  Weight: 70.31 kg

DRUGS (5)
  1. BRACES FOR JOINTS [Concomitant]
  2. GLASSES [Concomitant]
  3. LEVAQUIN [Suspect]
     Active Substance: LEVOFLOXACIN
     Indication: PNEUMONIA
     Dosage: 3 TABLET(S) ONCE A DAY TAKEN BY MOUTH
     Route: 048
     Dates: start: 20130113, end: 20130114
  4. HEATING PADS [Concomitant]
  5. HEARING AIDS [Concomitant]

REACTIONS (4)
  - Hypoacusis [None]
  - Vision blurred [None]
  - Rheumatoid arthritis [None]
  - Arthritis [None]

NARRATIVE: CASE EVENT DATE: 20130113
